FAERS Safety Report 13431229 (Version 1)
Quarter: 2017Q2

REPORT INFORMATION
  Report Type: Spontaneous
  Country: US (occurrence: US)
  Receive Date: 20170412
  Receipt Date: 20170412
  Transmission Date: 20170830
  Serious: Yes (Hospitalization)
  Sender: FDA-Public Use
  Company Number: US-GUERBET-US-20170064

PATIENT
  Age: 65 Year
  Sex: Male

DRUGS (6)
  1. LIPIODOL [Suspect]
     Active Substance: ETHIODIZED OIL
     Indication: TRANSCATHETER ARTERIAL CHEMOEMBOLISATION
     Route: 013
  2. DOXORUBICIN [Suspect]
     Active Substance: DOXORUBICIN
     Route: 013
  3. METRONIDAZOLE. [Concomitant]
     Active Substance: METRONIDAZOLE
     Indication: PROPHYLAXIS
     Route: 065
  4. LIPIODOL [Suspect]
     Active Substance: ETHIODIZED OIL
     Route: 013
  5. DOXORUBICIN [Suspect]
     Active Substance: DOXORUBICIN
     Indication: TRANSCATHETER ARTERIAL CHEMOEMBOLISATION
     Route: 013
  6. CEFAZOLIN [Concomitant]
     Active Substance: CEFAZOLIN
     Indication: PROPHYLAXIS
     Route: 065

REACTIONS (2)
  - Off label use [Recovered/Resolved]
  - Pancreatitis acute [Recovered/Resolved]
